FAERS Safety Report 25980847 (Version 1)
Quarter: 2025Q4

REPORT INFORMATION
  Report Type: Spontaneous
  Country: EU (occurrence: EU)
  Receive Date: 20251030
  Receipt Date: 20251030
  Transmission Date: 20260118
  Serious: Yes (Other)
  Sender: TG THERAPEUTICS
  Company Number: EU-TG THERAPEUTICS INC.-TGT006424

PATIENT

DRUGS (1)
  1. BRIUMVI [Suspect]
     Active Substance: UBLITUXIMAB-XIIY
     Indication: Relapsing-remitting multiple sclerosis
     Dosage: 150 MILLIGRAM, 100 ML/H
     Route: 042
     Dates: start: 20250922, end: 20250922

REACTIONS (3)
  - Rash [Recovered/Resolved]
  - Sensation of foreign body [Recovered/Resolved]
  - Larynx irritation [Recovered/Resolved]

NARRATIVE: CASE EVENT DATE: 20250922
